FAERS Safety Report 10726557 (Version 1)
Quarter: 2015Q1

REPORT INFORMATION
  Report Type: Spontaneous
  Country: US (occurrence: None)
  Receive Date: 20150120
  Receipt Date: 20150120
  Transmission Date: 20150721
  Serious: No
  Sender: FDA-Public Use
  Company Number: None

PATIENT
  Age: 59 Year
  Sex: Male

DRUGS (1)
  1. GLEEVEC [Suspect]
     Active Substance: IMATINIB MESYLATE
     Indication: ILL-DEFINED DISORDER
     Route: 048
     Dates: start: 2012

REACTIONS (3)
  - Fatigue [None]
  - Peripheral swelling [None]
  - Nausea [None]
